FAERS Safety Report 5786652-2 (Version None)
Quarter: 2008Q2

REPORT INFORMATION
  Report Type: 
  Country: None (occurrence: None)
  Receive Date: 20080624
  Receipt Date: 20080618
  Transmission Date: 20081010
  Serious: Yes (Life-Threatening)
  Sender: FDA-Public Use
  Company Number: FR-PFIZER INC-2008051676

PATIENT
  Sex: Male

DRUGS (7)
  1. ZOLOFT [Suspect]
     Route: 048
  2. SOLIAN [Suspect]
     Route: 048
  3. THERALENE [Suspect]
     Route: 048
  4. ZOLPIDEM TARTRATE [Suspect]
     Route: 048
  5. ATARAX [Suspect]
     Route: 048
  6. LEPTICUR [Suspect]
     Route: 048
  7. CLOZAPINE [Suspect]
     Route: 048

REACTIONS (2)
  - CHRONIC LYMPHOCYTIC LEUKAEMIA [None]
  - LYMPHOCYTOSIS [None]
